FAERS Safety Report 19768182 (Version 1)
Quarter: 2021Q3

REPORT INFORMATION
  Report Type: Spontaneous
  Country: CN (occurrence: CN)
  Receive Date: 20210831
  Receipt Date: 20210831
  Transmission Date: 20211014
  Serious: Yes (Hospitalization, Other)
  Sender: FDA-Public Use
  Company Number: CN-ASTELLAS-2021US032084

PATIENT
  Age: 11 Year
  Sex: Male
  Weight: 23 kg

DRUGS (3)
  1. TACROLIMUS. [Suspect]
     Active Substance: TACROLIMUS
     Route: 048
  2. METHYLPREDNISOLONE. [Concomitant]
     Active Substance: METHYLPREDNISOLONE
     Indication: PROPHYLAXIS AGAINST TRANSPLANT REJECTION
     Route: 065
  3. TACROLIMUS. [Suspect]
     Active Substance: TACROLIMUS
     Indication: PROPHYLAXIS AGAINST TRANSPLANT REJECTION
     Dosage: 0.5 MG, TWICE DAILY
     Route: 065

REACTIONS (17)
  - Biliary fistula [Unknown]
  - Splenic varices [Unknown]
  - Epstein-Barr virus infection [Unknown]
  - Hepatic function abnormal [Unknown]
  - Ascites [Unknown]
  - Splenomegaly [Unknown]
  - Pancytopenia [Unknown]
  - Dilatation intrahepatic duct acquired [Unknown]
  - Hantavirus pulmonary infection [Unknown]
  - Pleural effusion [Unknown]
  - Pneumonia [Unknown]
  - Portal vein stenosis [Unknown]
  - Pyrexia [Unknown]
  - Hypersplenism [Unknown]
  - Asthenia [Unknown]
  - Hypoproteinaemia [Unknown]
  - Portal hypertension [Unknown]

NARRATIVE: CASE EVENT DATE: 20140702
